FAERS Safety Report 21759348 (Version 1)
Quarter: 2022Q4

REPORT INFORMATION
  Report Type: Report from Study
  Country: US (occurrence: US)
  Receive Date: 20221221
  Receipt Date: 20221221
  Transmission Date: 20230113
  Serious: Yes (Other)
  Sender: FDA-Public Use
  Company Number: US-Ipsen Biopharmaceuticals, Inc.-2022-18235

PATIENT
  Age: 54 Year
  Sex: Female

DRUGS (1)
  1. SOMATULINE DEPOT [Suspect]
     Active Substance: LANREOTIDE ACETATE
     Indication: Carcinoid tumour of the small bowel
     Dosage: 120MG/0.5 ML
     Route: 058
     Dates: start: 202011

REACTIONS (11)
  - Neoplasm progression [Not Recovered/Not Resolved]
  - Fatigue [Not Recovered/Not Resolved]
  - Diarrhoea [Not Recovered/Not Resolved]
  - Blood glucose increased [Recovered/Resolved]
  - Drug intolerance [Recovered/Resolved]
  - Glycosylated haemoglobin decreased [Recovered/Resolved]
  - Fatigue [Recovered/Resolved]
  - Neoplasm progression [Recovered/Resolved]
  - Pain in extremity [Recovered/Resolved]
  - Tendonitis [Recovered/Resolved]
  - Pain in extremity [Recovered/Resolved]

NARRATIVE: CASE EVENT DATE: 20220601
